FAERS Safety Report 9203989 (Version 1)
Quarter: 2013Q1

REPORT INFORMATION
  Report Type: Spontaneous
  Country: US (occurrence: None)
  Receive Date: 20120709
  Receipt Date: 20120709
  Transmission Date: 20140127
  Serious: No
  Sender: FDA-Public Use
  Company Number: 2012HGS-003423

PATIENT
  Age: 32 Year
  Sex: Female
  Weight: 64.86 kg

DRUGS (8)
  1. BENLYSTA [Suspect]
     Dosage: 1 IN 28 D
     Route: 041
     Dates: start: 20120319
  2. LISINOPRIL (LISINOPRIL) (LISINOPRIL) [Concomitant]
  3. SOMA (CARISOPRODOL) (CARISOPRODOL) [Concomitant]
  4. VALIUM (DIAZEPAM ) (DIAZEPAM) [Concomitant]
  5. AMBIEN (ZOLOPIDEM TARTRATE) (ZOLPIDEM TARTRATE) [Concomitant]
  6. NORCO (VICODIN)  (PARACETAMOL, HYDROCODONE BITARTRATE) [Concomitant]
  7. ZANAFLEX (TIZANIDINE HYDROCHLORIDE) (TIZANIDINE HYDROCHLORIDE) [Concomitant]
  8. DEPO-PROVERA (MEDROXYPROGESTERONE ACETATE) (MEDROXYPROGESTERONE ACETATE) [Concomitant]

REACTIONS (1)
  - Insomnia [None]
